FAERS Safety Report 16463766 (Version 1)
Quarter: 2019Q2

REPORT INFORMATION
  Report Type: Spontaneous
  Country: CN (occurrence: CN)
  Receive Date: 20190621
  Receipt Date: 20190621
  Transmission Date: 20190711
  Serious: Yes (Other)
  Sender: FDA-Public Use
  Company Number: CN-PFIZER INC-2019261221

PATIENT
  Age: 39 Year
  Sex: Male

DRUGS (5)
  1. LENALIDOMIDE [Concomitant]
     Active Substance: LENALIDOMIDE
     Indication: POEMS SYNDROME
     Dosage: UNK
  2. DEXAMETHASONE. [Concomitant]
     Active Substance: DEXAMETHASONE
     Indication: POEMS SYNDROME
     Dosage: UNK
  3. PIPERACILLIN SODIUM/SULBACTAM SODIUM [Concomitant]
     Indication: ACINETOBACTER INFECTION
     Dosage: UNK
     Dates: start: 20171109
  4. TIGECYCLINE. [Suspect]
     Active Substance: TIGECYCLINE
     Indication: ACINETOBACTER INFECTION
     Dosage: 100 MG (FIRST DOSE)
     Route: 041
     Dates: start: 20171109
  5. TIGECYCLINE. [Suspect]
     Active Substance: TIGECYCLINE
     Dosage: 50 MG, 2X/DAY
     Route: 041
     Dates: end: 20171119

REACTIONS (4)
  - Hypofibrinogenaemia [Recovered/Resolved]
  - Prothrombin time prolonged [Unknown]
  - Activated partial thromboplastin time prolonged [Unknown]
  - Thrombin time prolonged [Unknown]

NARRATIVE: CASE EVENT DATE: 20171119
